FAERS Safety Report 10727476 (Version 13)
Quarter: 2016Q2

REPORT INFORMATION
  Report Type: Report from Study
  Country: US (occurrence: US)
  Receive Date: 20150121
  Receipt Date: 20160627
  Transmission Date: 20160815
  Serious: Yes (Hospitalization, Other)
  Sender: FDA-Public Use
  Company Number: PHEH2014US024179

PATIENT
  Age: 34 Year
  Sex: Male
  Weight: 66.6 kg

DRUGS (36)
  1. TOBI PODHALER [Suspect]
     Active Substance: TOBRAMYCIN
     Indication: PSEUDOMONAS INFECTION
     Dosage: 112 MG, BID, FOR 28 DAYS, REPEAT EVERY OTHER MONTH
     Route: 055
     Dates: start: 20140805
  2. SODIUM CHLORIDE. [Concomitant]
     Active Substance: SODIUM CHLORIDE
     Indication: PRODUCT USED FOR UNKNOWN INDICATION
     Dosage: 4 ML, BID (VIA NEBULIZATION)
     Route: 045
     Dates: start: 20141222
  3. TOBI PODHALER [Suspect]
     Active Substance: TOBRAMYCIN
     Dosage: 112 MG, BID
     Route: 055
  4. FLONASE [Concomitant]
     Active Substance: FLUTICASONE PROPIONATE
     Dosage: 1 DF, BID (1 SPRAY IN EACH NOSE TWICE DAILY)
     Route: 045
  5. FLOVENT HFA [Concomitant]
     Active Substance: FLUTICASONE PROPIONATE
     Indication: PRODUCT USED FOR UNKNOWN INDICATION
     Dosage: 2 DF (2PUFFS, 220 MCG/ ACTUATION INHALER), BID
     Route: 065
     Dates: start: 20140320
  6. GLUCAGON. [Concomitant]
     Active Substance: GLUCAGON
     Indication: PRODUCT USED FOR UNKNOWN INDICATION
     Dosage: UNK
     Route: 030
  7. CAYSTON [Concomitant]
     Active Substance: AZTREONAM
     Indication: PRODUCT USED FOR UNKNOWN INDICATION
     Dosage: 75 MG, TID
     Route: 045
     Dates: start: 20141223
  8. TESSALON [Concomitant]
     Active Substance: BENZONATATE
     Indication: COUGH
     Dosage: 100 MG, CAPSULE, BID, AS NEEDED
     Route: 048
  9. BOOST [Concomitant]
     Active Substance: DIETARY SUPPLEMENT
     Indication: PRODUCT USED FOR UNKNOWN INDICATION
     Dosage: 1 DF, TID
     Route: 065
     Dates: start: 20140729
  10. TYLENOL EXTRA STRENGTH [Concomitant]
     Active Substance: ACETAMINOPHEN
     Indication: PRODUCT USED FOR UNKNOWN INDICATION
     Dosage: UNK
     Route: 048
  11. LANTUS [Concomitant]
     Active Substance: INSULIN GLARGINE
     Indication: PRODUCT USED FOR UNKNOWN INDICATION
     Dosage: 8 U, QD (8 UNITS UNDER THE SKIN DAILY)
     Route: 058
     Dates: start: 20140828
  12. NORTRIPTYLIN [Concomitant]
     Active Substance: NORTRIPTYLINE
     Dosage: 50 MG, QD (ONCE IN THE EVENING)
     Route: 048
  13. ALBUTEROL. [Concomitant]
     Active Substance: ALBUTEROL
     Indication: PRODUCT USED FOR UNKNOWN INDICATION
     Dosage: UNK
     Route: 065
  14. ZOSYN [Concomitant]
     Active Substance: PIPERACILLIN SODIUM\TAZOBACTAM SODIUM
     Indication: PRODUCT USED FOR UNKNOWN INDICATION
     Dosage: UNK
     Route: 065
  15. PULMOZYME [Concomitant]
     Active Substance: DORNASE ALFA
     Indication: PRODUCT USED FOR UNKNOWN INDICATION
     Dosage: 2.5 MG (1AMPOULE), BID
     Route: 045
     Dates: start: 20141001
  16. FLONASE [Concomitant]
     Active Substance: FLUTICASONE PROPIONATE
     Indication: PRODUCT USED FOR UNKNOWN INDICATION
     Dosage: 1DF (50 MCG/ ACTUATION NASAL SPRAY), BID
     Route: 065
     Dates: start: 20140227
  17. NOVOLOG [Concomitant]
     Active Substance: INSULIN ASPART
     Dosage: 40 U (1 UNIT PER 15 GRAMS OF CARBOHYDRATE), QD
     Route: 058
     Dates: start: 20140811
  18. XOPENEX [Concomitant]
     Active Substance: LEVALBUTEROL HYDROCHLORIDE
     Dosage: 0.63 MG (1 AMPOULE), Q6H
     Route: 045
     Dates: start: 20140912
  19. PANCREAZE [Concomitant]
     Active Substance: PANCRELIPASE AMYLASE\PANCRELIPASE LIPASE\PANCRELIPASE PROTEASE
     Indication: PRODUCT USED FOR UNKNOWN INDICATION
     Dosage: 8 DF, BID (8 DF WITH MEALS AND 8 DF WITH SNACKS)
     Route: 048
     Dates: start: 20140613
  20. COMPAZINE [Concomitant]
     Active Substance: PROCHLORPERAZINE MALEATE
     Indication: PRODUCT USED FOR UNKNOWN INDICATION
     Dosage: 5 MG (1 TABLET), BID, AS NECESSARY
     Route: 065
     Dates: start: 20130821
  21. ASPIRIN. [Concomitant]
     Active Substance: ASPIRIN
     Indication: PRODUCT USED FOR UNKNOWN INDICATION
     Dosage: UNK
     Route: 065
  22. TOBI PODHALER [Suspect]
     Active Substance: TOBRAMYCIN
     Dosage: UNK
     Route: 042
     Dates: start: 20151023
  23. NOVOLOG [Concomitant]
     Active Substance: INSULIN ASPART
     Indication: PRODUCT USED FOR UNKNOWN INDICATION
     Dosage: 50 U, QD (UPTO 50 U PER DAY)
     Route: 058
     Dates: start: 20140723
  24. XOPENEX [Concomitant]
     Active Substance: LEVALBUTEROL HYDROCHLORIDE
     Indication: PRODUCT USED FOR UNKNOWN INDICATION
     Dosage: 2 DF (2 INHALATONS), Q6H
     Route: 045
     Dates: start: 20140506
  25. PHENERGAN [Concomitant]
     Active Substance: PROMETHAZINE HYDROCHLORIDE
     Indication: NAUSEA
     Dosage: 12.5 MG (1 TABLET), Q6H, AS NEEDED
     Route: 048
     Dates: start: 20140922
  26. CHOLECALCIFEROL [Concomitant]
     Active Substance: CHOLECALCIFEROL
     Indication: PRODUCT USED FOR UNKNOWN INDICATION
     Dosage: 50000 U, BIW (50000 UNITS, EVERY 14 DAYS)
     Route: 048
     Dates: start: 20130123
  27. PROLIXIN [Concomitant]
     Active Substance: FLUPHENAZINE HYDROCHLORIDE
     Indication: PRODUCT USED FOR UNKNOWN INDICATION
     Dosage: 1 MG, QD
     Route: 065
  28. TOBI PODHALER [Suspect]
     Active Substance: TOBRAMYCIN
     Dosage: 4 DF, INTO LUNGS EVERY 12 HOURS FOR 28 DAYS, REPEATE EVERY OTHER MONTH
     Route: 055
  29. AQUADEKS [Concomitant]
     Active Substance: MINERALS\VITAMINS
     Indication: PRODUCT USED FOR UNKNOWN INDICATION
     Dosage: 2 DF, QD (2 CAPSULES, QD)
     Route: 065
  30. NORTRIPTYLIN [Concomitant]
     Active Substance: NORTRIPTYLINE
     Indication: PRODUCT USED FOR UNKNOWN INDICATION
     Dosage: 25 MG, BID
     Route: 048
  31. TOBI PODHALER [Suspect]
     Active Substance: TOBRAMYCIN
     Indication: CYSTIC FIBROSIS
     Dosage: UNK
     Route: 065
     Dates: start: 20130712
  32. AZELASTINE [Concomitant]
     Active Substance: AZELASTINE
     Indication: PRODUCT USED FOR UNKNOWN INDICATION
     Dosage: 1 DF, BID (205.5 MCG, ONE SPRAY, TWICE A DAY)
     Route: 045
     Dates: start: 20140924
  33. ZITHROMAX [Concomitant]
     Active Substance: AZITHROMYCIN DIHYDRATE
     Indication: PRODUCT USED FOR UNKNOWN INDICATION
     Dosage: 1 DF, QD
     Route: 048
     Dates: start: 20140605
  34. FLONASE [Concomitant]
     Active Substance: FLUTICASONE PROPIONATE
     Dosage: 220 UG, BIW (1 PUFF TWICE DAILY)
     Route: 048
  35. XOPENEX [Concomitant]
     Active Substance: LEVALBUTEROL HYDROCHLORIDE
     Dosage: 1 DF (1.25 MG/3ML), QD
     Route: 045
  36. MEPHYTON [Concomitant]
     Active Substance: PHYTONADIONE
     Indication: PRODUCT USED FOR UNKNOWN INDICATION
     Dosage: 5 MG, QD, OCASSIONALLY
     Route: 048

REACTIONS (25)
  - Haemoptysis [Recovered/Resolved]
  - Increased viscosity of bronchial secretion [Unknown]
  - Sputum discoloured [Not Recovered/Not Resolved]
  - Pseudomonas infection [Recovering/Resolving]
  - Pain [Unknown]
  - Depressed mood [Not Recovered/Not Resolved]
  - Pain in extremity [Unknown]
  - Staphylococcal infection [Recovering/Resolving]
  - Malaise [Recovering/Resolving]
  - Pneumonia [Unknown]
  - Burkholderia cepacia complex infection [Unknown]
  - Deep vein thrombosis [Unknown]
  - Varicose vein [Unknown]
  - Dyspnoea [Recovering/Resolving]
  - Condition aggravated [Recovering/Resolving]
  - Pyrexia [Recovering/Resolving]
  - Paraesthesia [Unknown]
  - White blood cell count increased [Unknown]
  - Sputum increased [Recovering/Resolving]
  - Productive cough [Unknown]
  - Bronchiectasis [Unknown]
  - Bronchial secretion retention [Unknown]
  - Cystic fibrosis [Recovering/Resolving]
  - Blood sodium decreased [Unknown]
  - Weight decreased [Unknown]

NARRATIVE: CASE EVENT DATE: 201412
